FAERS Safety Report 24587250 (Version 1)
Quarter: 2024Q4

REPORT INFORMATION
  Report Type: Spontaneous
  Country: US (occurrence: US)
  Receive Date: 20241107
  Receipt Date: 20241107
  Transmission Date: 20250115
  Serious: Yes (Hospitalization)
  Sender: AMNEAL
  Company Number: US-AMNEAL PHARMACEUTICALS-2024-AMRX-03981

PATIENT
  Age: 58 Year
  Sex: Female

DRUGS (3)
  1. TESTOSTERONE [Suspect]
     Active Substance: TESTOSTERONE
     Indication: Product used for unknown indication
     Dosage: UNK
     Route: 065
  2. TESTOSTERONE [Suspect]
     Active Substance: TESTOSTERONE
     Dosage: RE-ADMINISTRATION AND DOSAGE INCREASES
     Route: 065
  3. TESTOSTERONE [Suspect]
     Active Substance: TESTOSTERONE
     Dosage: RESUMED IT AT A REDUCED DOSAGE
     Route: 065

REACTIONS (6)
  - Agitation [Unknown]
  - Thinking abnormal [Unknown]
  - Anxiety [Unknown]
  - Delusion [Unknown]
  - Insomnia [Unknown]
  - Incorrect dose administered [Unknown]
